FAERS Safety Report 8262430-X (Version None)
Quarter: 2012Q2

REPORT INFORMATION
  Report Type: 
  Country: None (occurrence: None)
  Receive Date: 20120405
  Receipt Date: 20120327
  Transmission Date: 20120825
  Serious: Yes (Other)
  Sender: FDA-Public Use
  Company Number: JP-JNJFOC-20120104682

PATIENT
  Sex: Female
  Weight: 69 kg

DRUGS (10)
  1. OXYGEN [Concomitant]
     Route: 055
     Dates: start: 20120116, end: 20120312
  2. REMICADE [Suspect]
     Indication: RHEUMATOID ARTHRITIS
     Dosage: THIRD INFUSION
     Route: 042
  3. ISOSORBIDE DINITRATE [Concomitant]
     Route: 065
     Dates: start: 20120303, end: 20120312
  4. ISONIAZID [Concomitant]
     Indication: ANTIBIOTIC PROPHYLAXIS
     Route: 048
     Dates: start: 20110805, end: 20111014
  5. HOKUNALIN [Concomitant]
     Route: 065
     Dates: start: 20120206
  6. TAMIFLU [Concomitant]
     Route: 048
     Dates: start: 20120202, end: 20120206
  7. REMICADE [Suspect]
     Route: 042
     Dates: start: 20110819
  8. METHOTREXATE [Concomitant]
     Indication: RHEUMATOID ARTHRITIS
     Dosage: 6 MG/W
     Route: 048
     Dates: start: 20110701, end: 20111216
  9. LASIX [Concomitant]
     Dates: start: 20120116
  10. FERRO GRADUMET [Concomitant]
     Route: 048
     Dates: start: 20120220

REACTIONS (7)
  - HAEMATEMESIS [None]
  - MORAXELLA INFECTION [None]
  - HAEMOPHILUS INFECTION [None]
  - IRON DEFICIENCY ANAEMIA [None]
  - HEPATIC FUNCTION ABNORMAL [None]
  - DISSEMINATED TUBERCULOSIS [None]
  - CARDIAC FAILURE [None]
